FAERS Safety Report 11111287 (Version 2)
Quarter: 2016Q2

REPORT INFORMATION
  Report Type: Spontaneous
  Country: US (occurrence: US)
  Receive Date: 20150513
  Receipt Date: 20160428
  Transmission Date: 20160815
  Serious: Yes (Death, Hospitalization, Other)
  Sender: FDA-Public Use
  Company Number: US-GLAXOSMITHKLINE-US2015GSK064597

PATIENT
  Age: 57 Year
  Sex: Male

DRUGS (3)
  1. GSK2118436 [Suspect]
     Active Substance: DABRAFENIB
     Route: 048
     Dates: start: 20150414
  2. LOPRESSOR [Concomitant]
     Active Substance: METOPROLOL TARTRATE
     Indication: PRODUCT USED FOR UNKNOWN INDICATION
     Route: 065
  3. MEKINIST [Suspect]
     Active Substance: TRAMETINIB DIMETHYL SULFOXIDE
     Indication: PROSTATE CANCER
     Dosage: UNK, U
     Route: 065
     Dates: start: 20150408

REACTIONS (6)
  - Pulmonary oedema [Unknown]
  - Malignant neoplasm progression [Fatal]
  - Heart rate increased [Unknown]
  - Cardiac failure congestive [Unknown]
  - Cardiac function test abnormal [Unknown]
  - Dyspnoea [Unknown]

NARRATIVE: CASE EVENT DATE: 20150419
